FAERS Safety Report 9525786 (Version 1)
Quarter: 2013Q1

REPORT INFORMATION
  Report Type: Spontaneous
  Country: US (occurrence: None)
  Receive Date: 20130314
  Receipt Date: 20130314
  Transmission Date: 20140127
  Serious: Yes (Other)
  Sender: FDA-Public Use
  Company Number: 1302USA004142

PATIENT
  Sex: Female

DRUGS (3)
  1. VICTRELIS [Suspect]
     Indication: HEPATITIS C
     Route: 048
     Dates: start: 20120520, end: 20130120
  2. RIBAVIRIN CAPSULES [Suspect]
     Indication: HEPATITIS C
     Route: 048
     Dates: start: 20120520, end: 20130120
  3. PEGASYS [Suspect]
     Indication: HEPATITIS C
     Dates: start: 20120520, end: 20130120

REACTIONS (2)
  - Headache [None]
  - Fatigue [None]
